FAERS Safety Report 23917043 (Version 4)
Quarter: 2024Q3

REPORT INFORMATION
  Report Type: Report from Study
  Country: JP (occurrence: JP)
  Receive Date: 20240529
  Receipt Date: 20240807
  Transmission Date: 20241017
  Serious: Yes (Death, Hospitalization)
  Sender: DAIICHI
  Company Number: JP-DSJP-DSJ-2024-118769

PATIENT
  Age: 6 Decade
  Sex: Female
  Weight: 46 kg

DRUGS (4)
  1. ENHERTU [Suspect]
     Active Substance: FAM-TRASTUZUMAB DERUXTECAN-NXKI
     Indication: HER2 low breast cancer
     Dosage: 3.2 MG/KG, ONCE EVERY 3 WK
     Route: 041
     Dates: start: 20230807, end: 20230807
  2. BEVACIZUMAB [Suspect]
     Active Substance: BEVACIZUMAB
     Indication: HER2 low breast cancer
     Dosage: UNK
     Route: 065
     Dates: start: 202303, end: 202303
  3. NK1 receptor antagonist [Concomitant]
     Indication: Antiemetic supportive care
     Dosage: UNK
     Route: 065
  4. DEXAMETHASONE [Concomitant]
     Active Substance: DEXAMETHASONE
     Indication: Antiemetic supportive care
     Dosage: UNK
     Route: 048

REACTIONS (2)
  - Interstitial lung disease [Fatal]
  - Underdose [Unknown]

NARRATIVE: CASE EVENT DATE: 20230807
